FAERS Safety Report 8422507-2 (Version None)
Quarter: 2012Q2

REPORT INFORMATION
  Report Type: 
  Country: None (occurrence: None)
  Receive Date: 20120608
  Receipt Date: 20120531
  Transmission Date: 20120825
  Serious: Yes (Other)
  Sender: FDA-Public Use
  Company Number: US-ABBOTT-12P-163-0941472-00

PATIENT
  Age: 45 Year
  Sex: Female

DRUGS (9)
  1. SULFASALAZINE [Concomitant]
     Indication: INFLAMMATION
     Dosage: 2 IN THE AM AND 2 IN PM
  2. PREDNISONE TAB [Suspect]
     Indication: PRODUCT USED FOR UNKNOWN INDICATION
  3. HUMIRA [Suspect]
     Indication: RHEUMATOID ARTHRITIS
     Dates: start: 20120416
  4. SULFASALAZINE [Concomitant]
     Indication: SWELLING
  5. LISINOPRIL [Concomitant]
     Indication: HYPERTENSION
     Dosage: DAILY
  6. CALCIUM [Concomitant]
     Indication: SUPPLEMENTATION THERAPY
  7. ASPIRIN [Concomitant]
     Indication: PRODUCT USED FOR UNKNOWN INDICATION
     Dosage: DAILY
  8. TRAMADOL HCL [Concomitant]
     Indication: PAIN
  9. METFORMIN HCL [Concomitant]
     Indication: DIABETES MELLITUS

REACTIONS (4)
  - INJECTION SITE PAIN [None]
  - LIVER INJURY [None]
  - ARTHRALGIA [None]
  - ABASIA [None]
